FAERS Safety Report 11793004 (Version 2)
Quarter: 2016Q1

REPORT INFORMATION
  Report Type: Report from Study
  Country: US (occurrence: US)
  Receive Date: 20151202
  Receipt Date: 20160202
  Transmission Date: 20160525
  Serious: Yes (Other)
  Sender: FDA-Public Use
  Company Number: US-GILEAD-2015-0185466

PATIENT
  Age: 77 Year
  Sex: Female

DRUGS (3)
  1. FEN-PHEN [Suspect]
     Active Substance: FENFLURAMINE\PHENTERMINE
     Indication: PRODUCT USED FOR UNKNOWN INDICATION
     Route: 065
  2. AMBRISENTAN [Suspect]
     Active Substance: AMBRISENTAN
     Indication: THERAPEUTIC RESPONSE UNEXPECTED
  3. AMBRISENTAN [Suspect]
     Active Substance: AMBRISENTAN
     Indication: PULMONARY ARTERIAL HYPERTENSION
     Dosage: 10 MG, QD
     Route: 065
     Dates: start: 20091224

REACTIONS (1)
  - Pulmonary arterial pressure increased [Unknown]
